FAERS Safety Report 16433069 (Version 1)
Quarter: 2019Q2

REPORT INFORMATION
  Report Type: Spontaneous
  Country: CA (occurrence: CA)
  Receive Date: 20190614
  Receipt Date: 20190614
  Transmission Date: 20190711
  Serious: Yes (Death)
  Sender: FDA-Public Use
  Company Number: CA-NAPPMUNDI-CAN-2019-0010116

PATIENT
  Age: 63 Year
  Sex: Male

DRUGS (5)
  1. QUETIAPINE. [Concomitant]
     Active Substance: QUETIAPINE
  2. RAMIPRIL. [Concomitant]
     Active Substance: RAMIPRIL
  3. HYDROMORPH CONTIN [Suspect]
     Active Substance: HYDROMORPHONE
     Indication: PAIN
     Dosage: 90 EVERY 1 MONTH
     Route: 048
  4. HYDROMORPHONE HYDROCHLORIDE. [Suspect]
     Active Substance: HYDROMORPHONE HYDROCHLORIDE
     Indication: PAIN
     Dosage: 15 EVERY 7 DAY(S)
     Route: 048
  5. OMEPRAZOLE. [Concomitant]
     Active Substance: OMEPRAZOLE

REACTIONS (4)
  - Confusional state [Fatal]
  - Postmortem blood drug level [Fatal]
  - Drug abuser [Fatal]
  - Incoherent [Fatal]
